FAERS Safety Report 23251783 (Version 1)
Quarter: 2023Q4

REPORT INFORMATION
  Report Type: Spontaneous
  Country: CN (occurrence: CN)
  Receive Date: 20231201
  Receipt Date: 20231201
  Transmission Date: 20240109
  Serious: Yes (Other)
  Sender: FDA-Public Use
  Company Number: None

PATIENT
  Age: 37 Year
  Sex: Female
  Weight: 50 kg

DRUGS (4)
  1. CLINOMEL [Suspect]
     Active Substance: AMINO ACIDS\DEXTROSE\ELECTROLYTES NOS\SOYBEAN OIL
     Indication: Symptomatic treatment
     Dosage: (DOSAGE FORM: INJECTION) 1000 ML TWICE DAILY
     Route: 041
     Dates: start: 20230518, end: 20230521
  2. CLINOMEL [Suspect]
     Active Substance: AMINO ACIDS\DEXTROSE\ELECTROLYTES NOS\SOYBEAN OIL
     Indication: Nutritional supplementation
     Dosage: (DOSAGE FORM: INJECTION) 1000 ML ONCE DAILY
     Route: 041
     Dates: start: 20230522, end: 20230524
  3. CEFTIZOXIME SODIUM [Suspect]
     Active Substance: CEFTIZOXIME SODIUM
     Indication: Anti-infective therapy
     Dosage: (DOSAGE FORM: POWDER INJECTION) 1 G THRICE A DAY (TRADE NAME: YIBOSHILING)
     Route: 041
     Dates: start: 20230518, end: 20230524
  4. CEFTIZOXIME SODIUM [Suspect]
     Active Substance: CEFTIZOXIME SODIUM
     Indication: Drug therapy

REACTIONS (10)
  - Hepatic failure [Unknown]
  - Haemorrhage intracranial [Unknown]
  - Brain herniation [Unknown]
  - Brain oedema [Unknown]
  - Hypoxic-ischaemic encephalopathy [Unknown]
  - Multiple organ dysfunction syndrome [Unknown]
  - Connective tissue disorder [Unknown]
  - Condition aggravated [Unknown]
  - Bacterial test positive [Unknown]
  - Pyrexia [Unknown]

NARRATIVE: CASE EVENT DATE: 20230522
